FAERS Safety Report 6196015-6 (Version None)
Quarter: 2009Q2

REPORT INFORMATION
  Report Type: 
  Country: None (occurrence: None)
  Receive Date: 20090520
  Receipt Date: 20041007
  Transmission Date: 20091009
  Serious: Yes (Death, Hospitalization)
  Sender: FDA-Public Use
  Company Number: NL-ROCHE-597578

PATIENT
  Sex: Male

DRUGS (2)
  1. CAPECITABINE [Suspect]
     Route: 048
     Dates: start: 20040812, end: 20040824
  2. OXALIPLATIN [Suspect]
     Route: 042
     Dates: start: 20040811, end: 20040828

REACTIONS (4)
  - NAUSEA [None]
  - PYREXIA [None]
  - SEPSIS [None]
  - VOMITING [None]
